FAERS Safety Report 9945139 (Version 1)
Quarter: 2014Q1

REPORT INFORMATION
  Report Type: Report from Study
  Country: US (occurrence: US)
  Receive Date: 20140303
  Receipt Date: 20140303
  Transmission Date: 20141002
  Serious: No
  Sender: FDA-Public Use
  Company Number: US-ABBVIE-13P-163-1055406-00

PATIENT
  Age: 78 Year
  Sex: Female

DRUGS (10)
  1. HUMIRA [Suspect]
     Indication: COLITIS ULCERATIVE
     Dates: start: 20130125
  2. PREDNISONE [Concomitant]
     Indication: PRODUCT USED FOR UNKNOWN INDICATION
     Dosage: TAPER DOWN TO 1 MG DAILY
  3. AMLODIPINE BESYLATE [Concomitant]
     Indication: PRODUCT USED FOR UNKNOWN INDICATION
     Dosage: 5 MG DAILY
  4. ATENOLOL [Concomitant]
     Indication: PRODUCT USED FOR UNKNOWN INDICATION
     Dosage: 1.5 DAILY
  5. MICARDIS [Concomitant]
     Indication: HYPERTENSION
     Dosage: 40 MG DAILY
  6. TRAZODONE [Concomitant]
     Indication: INSOMNIA
     Dosage: 50 MG DAILY
  7. PRILOSEC [Concomitant]
     Indication: PRODUCT USED FOR UNKNOWN INDICATION
  8. PROBIOTICS [Concomitant]
     Indication: NUTRITIONAL SUPPLEMENTATION
  9. CENTRUM [Concomitant]
     Indication: NUTRITIONAL SUPPLEMENTATION
     Dosage: 500 MG DAILY
  10. ZYRTEC [Concomitant]
     Indication: HYPERSENSITIVITY

REACTIONS (5)
  - Flatulence [Unknown]
  - Haemorrhage [Not Recovered/Not Resolved]
  - Contusion [Not Recovered/Not Resolved]
  - Rectal haemorrhage [Unknown]
  - Influenza [Unknown]
